FAERS Safety Report 5904253-X (Version None)
Quarter: 2008Q4

REPORT INFORMATION
  Report Type: 
  Country: None (occurrence: None)
  Receive Date: 20081001
  Receipt Date: 20080930
  Transmission Date: 20090506
  Serious: Yes (Hospitalization)
  Sender: FDA-Public Use
  Company Number: US-BAYER-200611535BWH

PATIENT
  Age: 65 Year
  Sex: Male
  Weight: 88 kg

DRUGS (4)
  1. NEXAVAR [Suspect]
     Indication: RENAL CELL CARCINOMA
     Dosage: TOTAL DAILY DOSE: 800 MG  UNIT DOSE: 200 MG
     Route: 048
     Dates: start: 20060301, end: 20080301
  2. NEXAVAR [Suspect]
     Dosage: TOTAL DAILY DOSE: 800 MG  UNIT DOSE: 200 MG
     Route: 048
     Dates: start: 20080501
  3. BISOPROLOL FUMARATE [Concomitant]
  4. PAXIL [Concomitant]

REACTIONS (15)
  - ALOPECIA [None]
  - BLOOD PRESSURE INCREASED [None]
  - CARDIAC OPERATION [None]
  - DIARRHOEA [None]
  - ERYTHEMA [None]
  - HYPERKERATOSIS [None]
  - MUSCULAR WEAKNESS [None]
  - OROPHARYNGEAL PAIN [None]
  - PAIN IN EXTREMITY [None]
  - RASH [None]
  - RASH GENERALISED [None]
  - RETCHING [None]
  - SKIN IRRITATION [None]
  - SWELLING FACE [None]
  - URTICARIA [None]
